FAERS Safety Report 5463368-3 (Version None)
Quarter: 2007Q3

REPORT INFORMATION
  Report Type: 
  Country: None (occurrence: None)
  Receive Date: 20070920
  Receipt Date: 20070910
  Transmission Date: 20080115
  Serious: Yes (Hospitalization)
  Sender: FDA-Public Use
  Company Number: US-AMGEN-US242938

PATIENT
  Age: 58 Year
  Sex: Female
  Weight: 65.8 kg

DRUGS (1)
  1. PROCRIT [Suspect]
     Indication: MYELODYSPLASTIC SYNDROME
     Dates: start: 20030101, end: 20040101

REACTIONS (3)
  - ARTHRALGIA [None]
  - BONE MARROW TRANSPLANT [None]
  - GAIT DISTURBANCE [None]
